FAERS Safety Report 17969188 (Version 1)
Quarter: 2020Q3

REPORT INFORMATION
  Report Type: Spontaneous
  Country: US (occurrence: US)
  Receive Date: 20200701
  Receipt Date: 20200701
  Transmission Date: 20201103
  Serious: No
  Sender: FDA-Public Use
  Company Number: US-PFM-2020-01641

PATIENT
  Sex: Male

DRUGS (2)
  1. PEPCID [Suspect]
     Active Substance: FAMOTIDINE
     Indication: PRODUCT USED FOR UNKNOWN INDICATION
     Dosage: UNK
     Route: 065
  2. HEMANGEOL [Suspect]
     Active Substance: PROPRANOLOL HYDROCHLORIDE
     Indication: PRODUCT USED FOR UNKNOWN INDICATION
     Dosage: 3.4 ML, BID (2/DAY)
     Route: 065

REACTIONS (4)
  - Wheezing [Recovered/Resolved]
  - Bronchospasm [Recovered/Resolved]
  - Upper respiratory tract infection [Recovered/Resolved]
  - Rash [Recovered/Resolved]
